FAERS Safety Report 9131899 (Version 6)
Quarter: 2013Q2

REPORT INFORMATION
  Report Type: Report from Study
  Country: DE (occurrence: DE)
  Receive Date: 20130301
  Receipt Date: 20130426
  Transmission Date: 20140414
  Serious: Yes (Hospitalization)
  Sender: FDA-Public Use
  Company Number: PHHY2013DE020060

PATIENT
  Age: 48 Year
  Sex: Male

DRUGS (1)
  1. FTY 720 [Suspect]
     Indication: MULTIPLE SCLEROSIS
     Dosage: 0.5 MG, QD
     Route: 048
     Dates: start: 20121016

REACTIONS (8)
  - Cerebrovascular accident [Unknown]
  - Cerebral infarction [Recovering/Resolving]
  - Vertigo [Recovered/Resolved]
  - Nausea [Unknown]
  - Vertebral artery thrombosis [Unknown]
  - Vertebral artery dissection [Recovering/Resolving]
  - Headache [Unknown]
  - Blood triglycerides increased [Not Recovered/Not Resolved]
